FAERS Safety Report 6089327-8 (Version None)
Quarter: 2009Q1

REPORT INFORMATION
  Report Type: 
  Country: None (occurrence: None)
  Receive Date: 20090224
  Receipt Date: 20090211
  Transmission Date: 20090719
  Serious: Yes (Other)
  Sender: FDA-Public Use
  Company Number: PHHY2009DK04977

PATIENT
  Age: 35 Year
  Sex: Male

DRUGS (6)
  1. LEPONEX [Suspect]
     Dosage: UNK
     Dates: start: 20081031
  2. LEPONEX [Suspect]
     Dosage: 250 MG, BID
  3. LEPONEX [Suspect]
     Dosage: 300 MG, BID
     Dates: start: 20081218
  4. CLOZAPIN HEXAL (NGX) [Suspect]
  5. CISORDINOL [Concomitant]
     Dosage: 150 MG EVERY SECOND WEEK
     Dates: end: 20090203
  6. EGAZIL [Concomitant]
     Dosage: 0,2 X 4 (UNIT NOT PROVIDED)
     Dates: start: 20081218

REACTIONS (5)
  - DYSKINESIA [None]
  - FALL [None]
  - HYPOTONIA [None]
  - SALIVARY HYPERSECRETION [None]
  - SEDATION [None]
